FAERS Safety Report 12629850 (Version 2)
Quarter: 2016Q3

REPORT INFORMATION
  Report Type: Spontaneous
  Country: US (occurrence: US)
  Receive Date: 20160808
  Receipt Date: 20160916
  Transmission Date: 20161109
  Serious: Yes (Other)
  Sender: FDA-Public Use
  Company Number: US-SA-2016SA140070

PATIENT
  Age: 67 Year
  Sex: Female

DRUGS (1)
  1. LANTUS [Suspect]
     Active Substance: INSULIN GLARGINE
     Indication: DIABETES MELLITUS
     Dosage: 60 MORNING AND 50 NIGHT?DAILY DOE:110 ;UNITS NOT SPECIFIED
     Route: 065

REACTIONS (2)
  - Gastric disorder [Unknown]
  - Product use issue [Unknown]
